FAERS Safety Report 6698026-0 (Version None)
Quarter: 2010Q2

REPORT INFORMATION
  Report Type: 
  Country: None (occurrence: None)
  Receive Date: 20100427
  Receipt Date: 20100413
  Transmission Date: 20101027
  Serious: Yes (Hospitalization)
  Sender: FDA-Public Use
  Company Number: SE-BAYER-201014810GPV

PATIENT
  Age: 55 Year
  Sex: Male

DRUGS (7)
  1. BETAFERON [Suspect]
     Indication: MULTIPLE SCLEROSIS
     Route: 058
     Dates: start: 19970101
  2. BISOPROLOL [Concomitant]
     Indication: HYPERTENSION
     Dosage: TOTAL DAILY DOSE: 5 MG
     Route: 048
  3. SALURES [Concomitant]
     Indication: HYPERTENSION
     Dosage: TOTAL DAILY DOSE: 5 MG
     Route: 048
  4. FESOTERODINE [Concomitant]
     Dosage: TOTAL DAILY DOSE: 8 MG
     Route: 048
  5. IBRUPROFEN [Concomitant]
     Route: 048
  6. ALVEDON [Concomitant]
     Route: 048
  7. PROPAVAN [Concomitant]
     Route: 048

REACTIONS (4)
  - CLUSTER HEADACHE [None]
  - EYE DISORDER [None]
  - UNEVALUABLE EVENT [None]
  - VISUAL ACUITY TESTS ABNORMAL [None]
